FAERS Safety Report 12308994 (Version 1)
Quarter: 2016Q2

REPORT INFORMATION
  Report Type: Report from Study
  Country: IT (occurrence: IT)
  Receive Date: 20160427
  Receipt Date: 20160427
  Transmission Date: 20160815
  Serious: Yes (Life-Threatening)
  Sender: FDA-Public Use
  Company Number: IT-ROCHE-1747374

PATIENT
  Age: 54 Year
  Sex: Male
  Weight: 66 kg

DRUGS (2)
  1. COBIMETINIB [Suspect]
     Active Substance: COBIMETINIB
     Indication: METASTATIC MALIGNANT MELANOMA
     Dosage: THE LAST DOSE PRIOR TO THE LIPASE INCREASE WAS ADMINISTERED ON 08/JAN/2016; DAYS 1 TO 21 OF EACH 28
     Route: 048
     Dates: start: 20130531
  2. VEMURAFENIB [Suspect]
     Active Substance: VEMURAFENIB
     Indication: METASTATIC MALIGNANT MELANOMA
     Dosage: THE MOST RECENT DOSE PRIOR TO THE LIPASE INCREASE WAS ADMINISTERED ON 15/JAN/2016 (720MG)
     Route: 048
     Dates: start: 20130531

REACTIONS (1)
  - Lipase increased [Recovered/Resolved]

NARRATIVE: CASE EVENT DATE: 20160115
